FAERS Safety Report 10479750 (Version 1)
Quarter: 2014Q3

REPORT INFORMATION
  Report Type: Spontaneous
  Country: ES (occurrence: ES)
  Receive Date: 20140927
  Receipt Date: 20140927
  Transmission Date: 20150326
  Serious: Yes (Hospitalization)
  Sender: FDA-Public Use
  Company Number: PHHY2014ES122054

PATIENT
  Age: 44 Year
  Sex: Male

DRUGS (1)
  1. SULFAMETHOXAZOLE AND TRIMETHOPRIM [Suspect]
     Active Substance: SULFAMETHOXAZOLE\TRIMETHOPRIM
     Indication: PNEUMOCYSTIS JIROVECII PNEUMONIA

REACTIONS (8)
  - Eosinophilia [Recovered/Resolved]
  - Erythema [Unknown]
  - Conjunctival hyperaemia [Unknown]
  - Pruritus [Unknown]
  - Pyrexia [Unknown]
  - Skin lesion [Unknown]
  - Drug reaction with eosinophilia and systemic symptoms [Unknown]
  - Hypertransaminasaemia [Recovered/Resolved]
